FAERS Safety Report 26125201 (Version 1)
Quarter: 2025Q4

REPORT INFORMATION
  Report Type: Spontaneous
  Country: AU (occurrence: AU)
  Receive Date: 20251205
  Receipt Date: 20251205
  Transmission Date: 20260117
  Serious: Yes (Other)
  Sender: BRISTOL-MYERS SQUIBB COMPANY
  Company Number: AU-BRISTOL-MYERS SQUIBB COMPANY-2025-162535

PATIENT
  Age: 50 Year
  Sex: Female

DRUGS (3)
  1. DASATINIB [Suspect]
     Active Substance: DASATINIB
     Indication: Chronic myeloid leukaemia
  2. DASATINIB [Suspect]
     Active Substance: DASATINIB
  3. DASATINIB [Suspect]
     Active Substance: DASATINIB

REACTIONS (11)
  - Fatigue [Unknown]
  - Brain fog [Unknown]
  - Palpitations [Unknown]
  - Anaemia [Unknown]
  - Hypomenorrhoea [Unknown]
  - Bone pain [Unknown]
  - Nasopharyngitis [Unknown]
  - Dry skin [Unknown]
  - Alopecia [Unknown]
  - Rash [Unknown]
  - Malignant melanoma [Unknown]
